FAERS Safety Report 8381779-3 (Version None)
Quarter: 2012Q2

REPORT INFORMATION
  Report Type: 
  Country: None (occurrence: None)
  Receive Date: 20120524
  Receipt Date: 20120515
  Transmission Date: 20120825
  Serious: Yes (Other)
  Sender: FDA-Public Use
  Company Number: US-BRISTOL-MYERS SQUIBB COMPANY-16594889

PATIENT
  Sex: Male

DRUGS (20)
  1. FLEXERIL [Concomitant]
     Indication: MUSCLE SPASMS
     Dosage: BID
  2. NEXIUM [Concomitant]
  3. LYRICA [Concomitant]
     Indication: PAIN
     Dosage: 1 TAB
  4. NORVASC [Concomitant]
  5. PROGRAF [Concomitant]
  6. DURAGESIC-100 [Concomitant]
  7. URSODIOL [Concomitant]
  8. AMOXICILLIN [Concomitant]
     Route: 048
  9. PREDNISONE [Concomitant]
  10. PROAIR HFA [Concomitant]
     Dosage: 2 PUFF Q EVERY 4-6 HOUR PRN
  11. SODIUM BICARBONATE [Concomitant]
  12. PRAVACHOL [Suspect]
  13. ALBUTEROL [Concomitant]
     Dosage: HFA 2 PUFFS Q 4-6 HOURS
  14. DILAUDID [Concomitant]
     Dosage: 1 TAB Q 6 HOURS
     Route: 048
  15. FERROUS GLUCONATE [Concomitant]
     Route: 048
  16. CATAPRES [Concomitant]
     Route: 048
  17. COMBIVENT [Concomitant]
     Dosage: 2 PUFFS QID
  18. LANTUS [Concomitant]
     Dosage: 1 DF: 40 UNITS
  19. LASIX [Concomitant]
     Dosage: QD
  20. PLAVIX [Concomitant]

REACTIONS (1)
  - GASTROINTESTINAL HAEMORRHAGE [None]
